FAERS Safety Report 10564649 (Version 5)
Quarter: 2017Q4

REPORT INFORMATION
  Report Type: Spontaneous
  Country: US (occurrence: US)
  Receive Date: 20141104
  Receipt Date: 20171206
  Transmission Date: 20180320
  Serious: Yes (Disabling, Other)
  Sender: FDA-Public Use
  Company Number: US-009507513-1411USA000572

PATIENT
  Sex: Female

DRUGS (2)
  1. FOSAMAX [Suspect]
     Active Substance: ALENDRONATE SODIUM
     Indication: OSTEOPOROSIS
     Dosage: UNK
     Route: 048
     Dates: start: 2005, end: 20091110
  2. FOSAMAX [Suspect]
     Active Substance: ALENDRONATE SODIUM
     Indication: OSTEOPOROSIS
     Dosage: 70 MG, UNK
     Route: 048
     Dates: start: 20050802, end: 20051217

REACTIONS (8)
  - Femur fracture [Unknown]
  - Vitamin D deficiency [Unknown]
  - Bursitis [Unknown]
  - Fall [Unknown]
  - Osteoarthritis [Unknown]
  - Dupuytren^s contracture [Unknown]
  - Spinal osteoarthritis [Unknown]
  - Calcium deficiency [Unknown]

NARRATIVE: CASE EVENT DATE: 20050802
